FAERS Safety Report 19090113 (Version 1)
Quarter: 2021Q2

REPORT INFORMATION
  Report Type: Spontaneous
  Country: US (occurrence: US)
  Receive Date: 20210404
  Receipt Date: 20210404
  Transmission Date: 20210717
  Serious: Yes (Other)
  Sender: FDA-Public Use
  Company Number: US-TEVA-2021-US-1896318

PATIENT
  Sex: Female

DRUGS (1)
  1. CLONAZEPAM TEVA [Suspect]
     Active Substance: CLONAZEPAM
     Route: 065

REACTIONS (6)
  - Headache [Unknown]
  - Insomnia [Unknown]
  - Tremor [Unknown]
  - Night sweats [Unknown]
  - Seizure [Unknown]
  - Anxiety [Unknown]
